FAERS Safety Report 8535170-7 (Version None)
Quarter: 2012Q3

REPORT INFORMATION
  Report Type: 
  Country: None (occurrence: None)
  Receive Date: 20120724
  Receipt Date: 20120711
  Transmission Date: 20120928
  Serious: Yes (Other)
  Sender: FDA-Public Use
  Company Number: US-009507513-1207USA005011

PATIENT

DRUGS (3)
  1. BENADRYL COUGH (AMMONIUM CHLORIDE (+) DIPHENHYDRAMINE HYDROCHLORIDE (+ [Concomitant]
  2. PHENYLEPHRINE HCL [Suspect]
     Indication: NASAL CONGESTION
     Dosage: 1 DF, QID
     Route: 048
     Dates: start: 19750101
  3. AFRIN ALL NIGHT NO DRIP [Suspect]
     Route: 045

REACTIONS (8)
  - FACIAL BONES FRACTURE [None]
  - DRUG DEPENDENCE [None]
  - BLOOD PRESSURE INCREASED [None]
  - NASAL CONGESTION [None]
  - DRUG ADMINISTRATION ERROR [None]
  - EPISTAXIS [None]
  - CHONDROPATHY [None]
  - REBOUND EFFECT [None]
